FAERS Safety Report 24235788 (Version 1)
Quarter: 2024Q3

REPORT INFORMATION
  Report Type: Spontaneous
  Country: US (occurrence: US)
  Receive Date: 20240822
  Receipt Date: 20240822
  Transmission Date: 20241017
  Serious: No
  Sender: TEVA
  Company Number: US-TEVA-VS-3229814

PATIENT
  Age: 83 Year
  Sex: Female

DRUGS (1)
  1. METOCLOPRAMIDE [Suspect]
     Active Substance: METOCLOPRAMIDE
     Indication: Gastrooesophageal reflux disease
     Route: 065

REACTIONS (6)
  - Pain [Unknown]
  - Adverse drug reaction [Unknown]
  - Feeling abnormal [Unknown]
  - Tremor [Unknown]
  - Paraesthesia [Unknown]
  - Drug ineffective [Unknown]
